FAERS Safety Report 8095093 (Version 3)
Quarter: 2012Q4

REPORT INFORMATION
  Report Type: 
  Country: US (occurrence: US)
  Receive Date: 20110818
  Receipt Date: 20121029
  Transmission Date: 20130627
  Serious: Yes (Hospitalization, Other)
  Sender: FDA-Public Use
  Company Number: US-BIOGENIDEC-2011BI030858

PATIENT
  Age: 64 Year
  Sex: Female

DRUGS (25)
  1. TYSABRI [Suspect]
     Indication: MULTIPLE SCLEROSIS
     Route: 042
     Dates: start: 20080111, end: 20080307
  2. TYSABRI [Suspect]
     Indication: MULTIPLE SCLEROSIS
     Route: 042
     Dates: start: 20090515, end: 20090612
  3. TYSABRI [Suspect]
     Indication: MULTIPLE SCLEROSIS
     Route: 042
     Dates: start: 20100106, end: 20110928
  4. TYSABRI [Suspect]
     Indication: MULTIPLE SCLEROSIS
     Route: 042
     Dates: start: 20120114, end: 20120229
  5. TYSABRI [Suspect]
     Indication: MULTIPLE SCLEROSIS
     Route: 042
     Dates: start: 20120625, end: 20120723
  6. AMANTIDINE [Concomitant]
     Indication: FATIGUE
     Route: 048
  7. BACLOFEN [Concomitant]
     Indication: MUSCLE SPASTICITY
     Route: 048
  8. VITAMIN D [Concomitant]
     Route: 048
  9. SIMVASTATIN [Concomitant]
     Route: 048
  10. SENNA [Concomitant]
     Indication: CONSTIPATION
  11. CLEARLAX [Concomitant]
     Indication: CONSTIPATION
  12. OXYBUTYNIN [Concomitant]
     Indication: URINARY INCONTINENCE
     Route: 048
  13. NYSTATIN POWDER [Concomitant]
  14. NORTRIPTYLINE [Concomitant]
     Route: 048
  15. NITROGLYCERINE [Concomitant]
  16. METOPROLOL [Concomitant]
     Indication: HYPERTENSION
     Route: 048
  17. METHOCARBAMOL [Concomitant]
     Indication: MUSCLE SPASMS
     Route: 048
  18. METFORMIN [Concomitant]
     Indication: DIABETES MELLITUS
     Route: 048
  19. LOSARTAN [Concomitant]
     Route: 048
  20. LEVOTHYROXINE [Concomitant]
     Indication: HYPOTHYROIDISM
     Route: 048
  21. FERROUS SULFATE [Concomitant]
     Indication: ANAEMIA
     Route: 048
  22. DOCUSATE SODIUM [Concomitant]
     Indication: CONSTIPATION
  23. DIPHENHYDRAMINE [Concomitant]
     Indication: PRURITUS
     Route: 048
  24. CITALOPRAM [Concomitant]
     Route: 048
  25. ACETAMINOPHEN [Concomitant]

REACTIONS (2)
  - Acute myocardial infarction [Recovered/Resolved]
  - Convulsion [Recovered/Resolved]
